FAERS Safety Report 5036668-9 (Version None)
Quarter: 2006Q2

REPORT INFORMATION
  Report Type: 
  Country: None (occurrence: None)
  Receive Date: 20060628
  Receipt Date: 20060328
  Transmission Date: 20061013
  Serious: Yes (Hospitalization)
  Sender: FDA-Public Use
  Company Number: HQWYE567429MAR06

PATIENT
  Sex: Female
  Weight: 38 kg

DRUGS (8)
  1. ENBREL [Suspect]
     Indication: RHEUMATOID ARTHRITIS
     Route: 058
     Dates: start: 20060202, end: 20060530
  2. PERSANTIN [Concomitant]
     Indication: NEPHROTIC SYNDROME
     Route: 048
     Dates: start: 20050817
  3. ALLOPURINOL [Concomitant]
     Indication: HYPERURICAEMIA
     Route: 048
     Dates: start: 20060320
  4. PARIET [Concomitant]
     Indication: GASTRIC ULCER
     Route: 048
     Dates: start: 20060325
  5. RENIVACE [Concomitant]
     Indication: HYPERTENSION
     Route: 048
     Dates: start: 20051109, end: 20060313
  6. LASIX [Concomitant]
     Indication: NEPHROTIC SYNDROME
     Route: 048
     Dates: start: 20051012
  7. PARAMESONE [Concomitant]
     Indication: NEPHROTIC SYNDROME
     Dosage: 4 MG, UNSPECIFIED
     Route: 048
     Dates: start: 20051220
  8. TAKEPRON [Concomitant]
     Indication: GASTRIC ULCER
     Route: 048
     Dates: start: 20051011, end: 20060324

REACTIONS (5)
  - BLOOD ALBUMIN DECREASED [None]
  - INTERVERTEBRAL DISCITIS [None]
  - PNEUMONIA STAPHYLOCOCCAL [None]
  - STAPHYLOCOCCAL SEPSIS [None]
  - STOMATITIS [None]
